FAERS Safety Report 8085182-5 (Version None)
Quarter: 2012Q1

REPORT INFORMATION
  Report Type: 
  Country: None (occurrence: None)
  Receive Date: 20120128
  Receipt Date: 20110328
  Transmission Date: 20120608
  Serious: No
  Sender: FDA-Public Use
  Company Number: US-ABBOTT-11P-163-0714845-00

PATIENT
  Sex: Male

DRUGS (10)
  1. AGGRENOX [Concomitant]
     Indication: ANGINA PECTORIS
     Dosage: 25/200MGS, 2 TABS
  2. NIASPAN [Concomitant]
     Indication: CARDIAC DISORDER
  3. HUMIRA [Suspect]
     Indication: CROHN'S DISEASE
     Dosage: DAY ONE
     Route: 058
     Dates: start: 20110321
  4. FUROSEMIDE [Concomitant]
     Indication: FLUID RETENTION
  5. POTASSIUM CHLORIDE [Concomitant]
     Indication: MINERAL SUPPLEMENTATION
  6. IRON [Concomitant]
     Indication: MINERAL SUPPLEMENTATION
  7. ISOSORBIDE MONONITRATE [Concomitant]
     Indication: ANGINA PECTORIS
  8. PRAVASTATIN [Concomitant]
     Indication: ANGINA PECTORIS
     Dosage: AT BEDTIME
  9. HYZAAR [Concomitant]
     Indication: HYPERTENSION
     Dosage: 100/25MGS
  10. SPECTRAVITE SR USP [Concomitant]
     Indication: VITAMIN SUPPLEMENTATION

REACTIONS (1)
  - DIARRHOEA [None]
